FAERS Safety Report 19229910 (Version 1)
Quarter: 2021Q2

REPORT INFORMATION
  Report Type: Other
  Country: US (occurrence: US)
  Receive Date: 20210506
  Receipt Date: 20210506
  Transmission Date: 20210717
  Serious: Yes (Other)
  Sender: FDA-Public Use
  Company Number: US-TECHDOW-2021TECHDOW000565

PATIENT
  Age: 54 Year
  Sex: Female

DRUGS (1)
  1. HEPARIN SODIUM INJECTION, USP (PRESERVATIVE FREE) [Suspect]
     Active Substance: HEPARIN SODIUM
     Indication: ANTICOAGULANT THERAPY
     Route: 041

REACTIONS (2)
  - Pulmonary embolism [Unknown]
  - Haemorrhage [Unknown]
